FAERS Safety Report 11384538 (Version 1)
Quarter: 2015Q3

REPORT INFORMATION
  Report Type: Spontaneous
  Country: US (occurrence: US)
  Receive Date: 20150811
  Receipt Date: 20150811
  Transmission Date: 20151125
  Serious: No
  Sender: FDA-Public Use
  Company Number: US-ELI_LILLY_AND_COMPANY-US201104002780

PATIENT
  Age: 45 Year
  Sex: Male

DRUGS (5)
  1. LEVOTHYROXINE. [Concomitant]
     Active Substance: LEVOTHYROXINE
     Dosage: 75 UG, UNK
  2. CIALIS [Suspect]
     Active Substance: TADALAFIL
     Dosage: 10 MG, UNK
  3. CIALIS [Suspect]
     Active Substance: TADALAFIL
     Dosage: 20 MG, UNK
  4. CLONAPINE [Concomitant]
     Dosage: 0.5 MG, UNK
  5. CIALIS [Suspect]
     Active Substance: TADALAFIL
     Dosage: 10 MG, UNK
     Dates: start: 201103

REACTIONS (1)
  - Restless legs syndrome [Recovered/Resolved]

NARRATIVE: CASE EVENT DATE: 201103
